FAERS Safety Report 4650329-7 (Version None)
Quarter: 2005Q2

REPORT INFORMATION
  Report Type: 
  Country: None (occurrence: None)
  Receive Date: 20050429
  Receipt Date: 20050415
  Transmission Date: 20051028
  Serious: Yes (Hospitalization)
  Sender: FDA-Public Use
  Company Number: SGB1-2005-00185JPN

PATIENT
  Age: 42 Year
  Sex: Male

DRUGS (9)
  1. LANTHANUM CARBONATE VS PLACEBO (CODE NOT BROKEN) TABLET [Suspect]
     Indication: HYPERPHOSPHATAEMIA
     Dosage: ORAL
     Route: 048
     Dates: start: 20050228, end: 20050410
  2. LANTHANUM CARBONATE (LANTHANUM CARBONATE) TABLET CHEWABLE [Suspect]
     Indication: HYPERPHOSPHATAEMIA
     Dosage: 750 MG DAILY, ORAL
     Route: 048
     Dates: start: 20050411, end: 20050414
  3. GLAKAY (MENATETRENONE) [Concomitant]
  4. ALLOPURINOL [Concomitant]
  5. PROTECADIN (LAFUTIDINE) [Concomitant]
  6. EPADEL (ETHYL ICOSAPENTATE) [Concomitant]
  7. DIOVAN HCT [Concomitant]
  8. KEBERA S (GLYCYRRHIZIC ACID, CYSTEINE, AMINOACETIC ACID) [Concomitant]
  9. ESPO(EPOETIN ALFA) [Concomitant]

REACTIONS (7)
  - COUGH [None]
  - FAECAL OCCULT BLOOD POSITIVE [None]
  - GASTRITIS [None]
  - MYOCARDIAL CALCIFICATION [None]
  - PHARYNGOLARYNGEAL PAIN [None]
  - PYREXIA [None]
  - RENAL HAEMORRHAGE [None]
